FAERS Safety Report 21888971 (Version 1)
Quarter: 2023Q1

REPORT INFORMATION
  Report Type: Spontaneous
  Country: US (occurrence: US)
  Receive Date: 20230120
  Receipt Date: 20230120
  Transmission Date: 20230418
  Serious: No
  Sender: FDA-Public Use
  Company Number: US-SA-SAC20230118001325

PATIENT
  Age: 35 Year
  Sex: Male
  Weight: 92 kg

DRUGS (2)
  1. DUPIXENT [Suspect]
     Active Substance: DUPILUMAB
     Indication: Eosinophilic oesophagitis
     Dosage: 300 MG QW
     Route: 058
     Dates: start: 20221228
  2. MOMETASONE [Concomitant]
     Active Substance: MOMETASONE
     Indication: Skin irritation
     Dosage: UNK

REACTIONS (6)
  - Injection site rash [Unknown]
  - Skin irritation [Unknown]
  - Application site exfoliation [Unknown]
  - Injection site dryness [Unknown]
  - Injection site erythema [Unknown]
  - Injection site pruritus [Recovering/Resolving]

NARRATIVE: CASE EVENT DATE: 20221228
